FAERS Safety Report 10757543 (Version 2)
Quarter: 2018Q4

REPORT INFORMATION
  Report Type: Spontaneous
  Country: FR (occurrence: FR)
  Receive Date: 20150203
  Receipt Date: 20181107
  Transmission Date: 20190204
  Serious: Yes (Hospitalization, Other)
  Sender: FDA-Public Use
  Company Number: FR-UCBSA-2015002338

PATIENT
  Age: 11 Year
  Sex: Male

DRUGS (3)
  1. EPITOMAX [Suspect]
     Active Substance: TOPIRAMATE
     Indication: PRODUCT USED FOR UNKNOWN INDICATION
     Dosage: 75 MG, DAILY DOSE
     Route: 048
  2. KEPPRA [Suspect]
     Active Substance: LEVETIRACETAM
     Indication: PRODUCT USED FOR UNKNOWN INDICATION
     Dosage: 600 MG, DAILY DOSE
  3. RISPERDAL [Suspect]
     Active Substance: RISPERIDONE
     Indication: PRODUCT USED FOR UNKNOWN INDICATION
     Dosage: 0.6 MG, DAILY DOSE
     Route: 048
     Dates: start: 201405

REACTIONS (11)
  - Dyskinesia [Unknown]
  - Disseminated intravascular coagulation [Recovered/Resolved]
  - Septic shock [Recovering/Resolving]
  - Hypotonic-hyporesponsive episode [Unknown]
  - Metabolic acidosis [Unknown]
  - Renal failure [Unknown]
  - Rhinitis [Unknown]
  - Blood creatine phosphokinase increased [Recovered/Resolved]
  - Miosis [Unknown]
  - Pyrexia [Unknown]
  - Hepatocellular injury [Recovering/Resolving]

NARRATIVE: CASE EVENT DATE: 20141217
